FAERS Safety Report 24050250 (Version 2)
Quarter: 2024Q3

REPORT INFORMATION
  Report Type: Report from Study
  Country: US (occurrence: US)
  Receive Date: 20240704
  Receipt Date: 20240718
  Transmission Date: 20241017
  Serious: Yes (Hospitalization)
  Sender: ULTRAGENYX PHARMACEUTICAL
  Company Number: US-ULTRAGENYX PHARMACEUTICAL INC.-US-UGX-24-01231

PATIENT
  Sex: Female

DRUGS (1)
  1. DOJOLVI [Suspect]
     Active Substance: TRIHEPTANOIN
     Indication: Product used for unknown indication
     Dosage: 38 MILLILITER, (13ML BID + 12ML QD)
     Route: 048

REACTIONS (2)
  - Hospitalisation [Unknown]
  - Tendon operation [Unknown]

NARRATIVE: CASE EVENT DATE: 20240101
